FAERS Safety Report 7580157-4 (Version None)
Quarter: 2011Q2

REPORT INFORMATION
  Report Type: 
  Country: None (occurrence: None)
  Receive Date: 20110629
  Receipt Date: 20110610
  Transmission Date: 20111010
  Serious: Yes (Hospitalization, Other)
  Sender: FDA-Public Use
  Company Number: US-BAYER-2011-024528

PATIENT
  Age: 32 Year
  Sex: Female
  Weight: 82.993 kg

DRUGS (4)
  1. BACTRIM [Concomitant]
  2. YAZ [Suspect]
     Indication: PREMENSTRUAL SYNDROME
     Dosage: UNK
     Dates: start: 20051102
  3. YAZ [Suspect]
     Dosage: UNK
     Dates: start: 20070101, end: 20080101
  4. IBUPROFEN [Concomitant]

REACTIONS (4)
  - THROMBOSIS [None]
  - PULMONARY THROMBOSIS [None]
  - DEEP VEIN THROMBOSIS [None]
  - PULMONARY EMBOLISM [None]
